FAERS Safety Report 5126724-9 (Version None)
Quarter: 2006Q4

REPORT INFORMATION
  Report Type: 
  Country: None (occurrence: None)
  Receive Date: 20061012
  Receipt Date: 20061012
  Transmission Date: 20070319
  Serious: Yes (Hospitalization)
  Sender: FDA-Public Use
  Company Number: None

PATIENT
  Sex: Male
  Weight: 84 kg

DRUGS (3)
  1. CARBOPLATIN [Suspect]
     Dosage: 500 MG
  2. GEMCITABINE HCL [Suspect]
     Dosage: 3200 MG
  3. TAXOL [Suspect]
     Dosage: 320 MG

REACTIONS (6)
  - BACTERIAL SEPSIS [None]
  - DIARRHOEA [None]
  - NAUSEA [None]
  - NEUTROPHIL COUNT DECREASED [None]
  - RENAL FAILURE ACUTE [None]
  - VOMITING [None]
